FAERS Safety Report 8990979 (Version 1)
Quarter: 2012Q4

REPORT INFORMATION
  Report Type: Spontaneous
  Country: GB (occurrence: None)
  Receive Date: 20121220
  Receipt Date: 20121220
  Transmission Date: 20130627
  Serious: Yes (Life-Threatening)
  Sender: FDA-Public Use
  Company Number: 2012SUN00340

PATIENT
  Age: 52 Year
  Sex: Female
  Weight: 83.7 kg

DRUGS (1)
  1. OCTREOTIDE [Suspect]
     Indication: HYPOGLYCEMIA
     Route: 058
     Dates: start: 20110928

REACTIONS (1)
  - Lymphoma [None]
